FAERS Safety Report 5381823-1 (Version None)
Quarter: 2007Q3

REPORT INFORMATION
  Report Type: 
  Country: None (occurrence: None)
  Receive Date: 20070705
  Receipt Date: 20070619
  Transmission Date: 20080115
  Serious: Yes (Hospitalization)
  Sender: FDA-Public Use
  Company Number: 2007001153

PATIENT
  Age: 85 Year
  Sex: Female

DRUGS (8)
  1. TARCEVA [Suspect]
     Indication: NON-SMALL CELL LUNG CANCER
     Dosage: 100 MG QD, ORAL
     Route: 048
     Dates: start: 20070401
  2. L-DOPA (LEVODOPA) [Concomitant]
  3. PROTONIX [Concomitant]
  4. NORVASC [Concomitant]
  5. RASAGILINE [Concomitant]
  6. LASIX [Concomitant]
  7. MEMANTINE HCL [Concomitant]
  8. CLINDAMYCIN OINTMENT [Concomitant]

REACTIONS (6)
  - ABDOMINAL PAIN [None]
  - FALL [None]
  - MALIGNANT NEOPLASM PROGRESSION [None]
  - OEDEMA PERIPHERAL [None]
  - RASH [None]
  - SUBARACHNOID HAEMORRHAGE [None]
